FAERS Safety Report 7706473-0 (Version None)
Quarter: 2011Q3

REPORT INFORMATION
  Report Type: 
  Country: None (occurrence: None)
  Receive Date: 20110824
  Receipt Date: 20110819
  Transmission Date: 20111222
  Serious: Yes (Hospitalization, Congenital Anomaly)
  Sender: FDA-Public Use
  Company Number: FR-PFIZER INC-FR-WYE-G02941209

PATIENT
  Sex: Female

DRUGS (19)
  1. PIPERACILLIN AND TAZOBACTAM [Suspect]
     Indication: PYREXIA
     Dosage: UNK
     Route: 064
     Dates: start: 20080226, end: 20080310
  2. CYTARABINE [Suspect]
     Dosage: UNKNOWN
     Route: 064
     Dates: start: 20080327, end: 20080330
  3. CERUBIDINE [Suspect]
     Dosage: UNK
     Route: 064
     Dates: start: 20080220, end: 20080222
  4. ACETYLSALICYLIC ACID/PARACETAMOL [Suspect]
     Dosage: UNK
     Route: 064
     Dates: start: 20080303, end: 20080304
  5. AMIKACIN [Suspect]
     Dosage: UNK
     Route: 064
     Dates: start: 20080303, end: 20080304
  6. ATARAX [Suspect]
     Dosage: UNK
     Route: 064
     Dates: start: 20080306, end: 20080306
  7. TRAMADOL HCL [Suspect]
     Dosage: UNK
     Route: 064
     Dates: start: 20080227, end: 20080227
  8. IMODIUM [Suspect]
     Dosage: UNK
     Route: 064
     Dates: start: 20080307, end: 20080308
  9. ECONAZOLE [Suspect]
     Dosage: UNK
     Route: 064
     Dates: start: 20080226, end: 20080303
  10. PLITICAN [Suspect]
     Dosage: UNK
     Route: 064
     Dates: start: 20080328, end: 20080330
  11. SPASFON [Suspect]
     Dosage: UNK
     Route: 064
     Dates: start: 20080401, end: 20080405
  12. PRIMPERAN TAB [Suspect]
     Dosage: UNK
     Route: 064
     Dates: start: 20080220, end: 20080226
  13. CYTARABINE [Suspect]
     Dosage: UNKNOWN
     Route: 064
     Dates: start: 20080220, end: 20080226
  14. DEBRIDAT ^IBRAHIM^ [Suspect]
     Dosage: UNK
     Route: 064
     Dates: start: 20080307, end: 20080308
  15. VANCOMYCIN [Suspect]
     Indication: PYREXIA
     Dosage: UNK
     Route: 064
     Dates: start: 20080227, end: 20080228
  16. ACUPAN [Suspect]
     Dosage: UNK
     Route: 064
     Dates: start: 20080303, end: 20080310
  17. SMECTA /OLD FORM/ [Suspect]
     Dosage: UNK
     Route: 064
     Dates: start: 20080228, end: 20080307
  18. LEVOFLOXACIN [Suspect]
     Dosage: UNK
     Route: 064
     Dates: start: 20080328, end: 20080414
  19. TARGOCID [Suspect]
     Dosage: UNK
     Route: 064
     Dates: start: 20080304, end: 20080306

REACTIONS (8)
  - PERIVENTRICULAR LEUKOMALACIA [None]
  - MATERNAL EXPOSURE DURING PREGNANCY [None]
  - FOETAL GROWTH RESTRICTION [None]
  - NEONATAL RESPIRATORY DISTRESS SYNDROME [None]
  - ANAEMIA NEONATAL [None]
  - FOETAL ARRHYTHMIA [None]
  - JAUNDICE NEONATAL [None]
  - PREMATURE BABY [None]
